FAERS Safety Report 21206414 (Version 1)
Quarter: 2022Q3

REPORT INFORMATION
  Report Type: Report from Study
  Country: RS (occurrence: RS)
  Receive Date: 20220812
  Receipt Date: 20220812
  Transmission Date: 20221026
  Serious: Yes (Death, Hospitalization, Other)
  Sender: FDA-Public Use
  Company Number: RS-GLAXOSMITHKLINE-RS2022GSK118130

PATIENT

DRUGS (5)
  1. LAMOTRIGINE [Suspect]
     Active Substance: LAMOTRIGINE
     Indication: Psychotherapy
     Dosage: UNK
  2. OLANZAPINE [Suspect]
     Active Substance: OLANZAPINE
     Indication: Psychotherapy
     Dosage: 560 MG
  3. CLOZAPINE [Suspect]
     Active Substance: CLOZAPINE
     Indication: Psychotherapy
     Dosage: 1000 MG
  4. ZOLPIDEM [Suspect]
     Active Substance: ZOLPIDEM TARTRATE
     Indication: Psychotherapy
     Dosage: 300 MG
  5. MIDAZOLAM [Suspect]
     Active Substance: MIDAZOLAM
     Indication: Psychotherapy
     Dosage: 990 MG

REACTIONS (6)
  - Coma [Unknown]
  - Pneumonia [Fatal]
  - Acute kidney injury [Fatal]
  - Hypotension [Recovered/Resolved]
  - Altered state of consciousness [Recovered/Resolved]
  - Toxicity to various agents [Unknown]
